FAERS Safety Report 10706423 (Version 1)
Quarter: 2015Q1

REPORT INFORMATION
  Report Type: Spontaneous
  Country: FR (occurrence: None)
  Receive Date: 20150109
  Receipt Date: 20150109
  Transmission Date: 20150721
  Serious: Yes (Hospitalization)
  Sender: FDA-Public Use
  Company Number: 8004320

PATIENT
  Age: 79 Year
  Sex: Male

DRUGS (11)
  1. ENANTONE LP [Suspect]
     Active Substance: LEUPROLIDE ACETATE
     Indication: PRODUCT USED FOR UNKNOWN INDICATION
     Dosage: LP (SUSTAINED RELEASEP (30 MG, 2 IN 1 YR)
     Route: 030
     Dates: end: 201406
  2. CORDARONE [Suspect]
     Active Substance: AMIODARONE HYDROCHLORIDE
     Indication: PRODUCT USED FOR UNKNOWN INDICATION
     Route: 048
  3. SOLUPRED (PREDNISOLONE) (PREDNISOLONE) [Concomitant]
  4. RAMIPRIL (RAMIPRIL) (RAMIPRIL) [Suspect]
     Active Substance: RAMIPRIL
     Indication: PRODUCT USED FOR UNKNOWN INDICATION
     Route: 048
     Dates: end: 20141010
  5. ZOLPIDEM (ZOLIPDEM) (ZOLPIDEM) [Suspect]
     Active Substance: ZOLPIDEM\ZOLPIDEM TARTRATE
     Indication: PRODUCT USED FOR UNKNOWN INDICATION
     Route: 048
  6. LEVOTHYROX [Suspect]
     Active Substance: LEVOTHYROXINE
     Indication: PRODUCT USED FOR UNKNOWN INDICATION
     Route: 048
  7. LERCANIDIPINE [Suspect]
     Active Substance: LERCANIDIPINE
     Indication: PRODUCT USED FOR UNKNOWN INDICATION
     Route: 048
     Dates: end: 201410
  8. LASILIX (FUROSEMIDE) (FUROSEMIDE) [Suspect]
     Active Substance: FUROSEMIDE
     Indication: PRODUCT USED FOR UNKNOWN INDICATION
     Route: 048
  9. CORVASAL (MOLSIDOMINE) (MJOLSIDOMINE) [Suspect]
     Active Substance: LINSIDOMINE
     Indication: PRODUCT USED FOR UNKNOWN INDICATION
     Dosage: 12 MG (4 MG, 3 IN 1 D)
     Route: 048
  10. KARDEGIC [Suspect]
     Active Substance: ASPIRIN LYSINE
     Indication: PRODUCT USED FOR UNKNOWN INDICATION
     Route: 048
  11. ATENOLOL (ATENOLOL) (ATENOLOL) [Concomitant]
     Active Substance: ATENOLOL

REACTIONS (4)
  - Pain [None]
  - Polymyalgia rheumatica [None]
  - Pancytopenia [None]
  - Condition aggravated [None]

NARRATIVE: CASE EVENT DATE: 201312
